FAERS Safety Report 4882734-8 (Version None)
Quarter: 2006Q1

REPORT INFORMATION
  Report Type: 
  Country: None (occurrence: None)
  Receive Date: 20060117
  Receipt Date: 20050419
  Transmission Date: 20060701
  Serious: Yes (Death, Hospitalization)
  Sender: FDA-Public Use
  Company Number: US-MERCK-0504USA03821

PATIENT
  Age: 66 Year
  Sex: Female
  Weight: 73 kg

DRUGS (3)
  1. VIOXX [Suspect]
     Route: 048
  2. IBUPROFEN [Concomitant]
     Route: 065
  3. TYLENOL (CAPLET) [Concomitant]
     Route: 065

REACTIONS (4)
  - FALL [None]
  - HEAD INJURY [None]
  - MYOCARDIAL INFARCTION [None]
  - NERVOUS SYSTEM DISORDER [None]
